FAERS Safety Report 14434482 (Version 3)
Quarter: 2018Q2

REPORT INFORMATION
  Report Type: Spontaneous
  Country: US (occurrence: US)
  Receive Date: 20180124
  Receipt Date: 20180515
  Transmission Date: 20180711
  Serious: Yes (Other)
  Sender: FDA-Public Use
  Company Number: US-009507513-1801USA008963

PATIENT
  Age: 62 Year
  Sex: Female

DRUGS (12)
  1. STERILE DILUENT (WATER) [Suspect]
     Active Substance: WATER
     Dosage: UNK
     Dates: start: 20180116, end: 20180116
  2. SYNTHROID [Concomitant]
     Active Substance: LEVOTHYROXINE SODIUM
  3. ADVAIR HFA [Concomitant]
     Active Substance: FLUTICASONE PROPIONATE\SALMETEROL XINAFOATE
  4. FLEXERIL [Concomitant]
     Active Substance: CYCLOBENZAPRINE HYDROCHLORIDE
  5. LISINOPRIL. [Concomitant]
     Active Substance: LISINOPRIL
  6. ALLEGRA [Concomitant]
     Active Substance: FEXOFENADINE HYDROCHLORIDE
  7. ASPIRIN. [Concomitant]
     Active Substance: ASPIRIN
  8. PROTONIX [Concomitant]
     Active Substance: PANTOPRAZOLE SODIUM
  9. ZOSTAVAX [Suspect]
     Active Substance: VARICELLA-ZOSTER VIRUS STRAIN OKA/MERCK LIVE ANTIGEN
     Indication: PROPHYLAXIS
     Dosage: .65 ML
     Dates: start: 20180116, end: 20180116
  10. CYMBALTA [Concomitant]
     Active Substance: DULOXETINE HYDROCHLORIDE
  11. HYDROCHLOROTHIAZIDE. [Concomitant]
     Active Substance: HYDROCHLOROTHIAZIDE
  12. VENTOLIN [Concomitant]
     Active Substance: ALBUTEROL SULFATE

REACTIONS (11)
  - Product administered at inappropriate site [Unknown]
  - Vaccination site pruritus [Recovering/Resolving]
  - Vaccination site pain [Recovering/Resolving]
  - Skin discolouration [Unknown]
  - Vaccination site rash [Recovering/Resolving]
  - Vaccination site induration [Recovering/Resolving]
  - Incorrect route of drug administration [Unknown]
  - Vaccination site warmth [Recovering/Resolving]
  - Vaccination site swelling [Recovered/Resolved]
  - Skin disorder [Recovering/Resolving]
  - Vaccination site erythema [Recovering/Resolving]

NARRATIVE: CASE EVENT DATE: 20180116
